FAERS Safety Report 15863915 (Version 1)
Quarter: 2018Q4

REPORT INFORMATION
  Report Type: Spontaneous
  Country: US (occurrence: US)
  Receive Date: 20181229
  Receipt Date: 20181229
  Transmission Date: 20190205
  Serious: Yes (Hospitalization)
  Sender: FDA-Public Use
  Company Number: None

PATIENT
  Age: 79 Year
  Sex: Male

DRUGS (2)
  1. APIXABAN [Suspect]
     Active Substance: APIXABAN
     Indication: PULMONARY EMBOLISM
     Route: 048
     Dates: start: 20181106, end: 20181123
  2. APIXABAN [Suspect]
     Active Substance: APIXABAN
     Indication: DEEP VEIN THROMBOSIS

REACTIONS (6)
  - Pancreatic carcinoma [None]
  - Anaemia [None]
  - Gastritis haemorrhagic [None]
  - Haemorrhage [None]
  - Cerebrovascular accident [None]
  - Deep vein thrombosis [None]

NARRATIVE: CASE EVENT DATE: 20181123
